FAERS Safety Report 22537989 (Version 2)
Quarter: 2023Q2

REPORT INFORMATION
  Report Type: Other
  Country: DE (occurrence: None)
  Receive Date: 20230608
  Receipt Date: 20230613
  Transmission Date: 20230721
  Serious: Yes (Hospitalization)
  Sender: FDA-Public Use
  Company Number: DE-ROCHE-3223117

PATIENT
  Age: 34 Year
  Sex: Female
  Weight: 53.5 kg

DRUGS (10)
  1. OCRELIZUMAB [Suspect]
     Active Substance: OCRELIZUMAB
     Indication: Relapsing-remitting multiple sclerosis
     Dosage: LAST DOSE PRIOR TO THE LMP (LAST MENSTRUAL PERIOD): : 21-FEB-2022
     Route: 065
     Dates: start: 20220221, end: 20220221
  2. OCRELIZUMAB [Suspect]
     Active Substance: OCRELIZUMAB
     Route: 065
     Dates: start: 20230530
  3. PROGESTERONE [Concomitant]
     Active Substance: PROGESTERONE
     Dates: start: 20220609, end: 20220624
  4. FERROUS GLUCONATE [Concomitant]
     Active Substance: FERROUS GLUCONATE
     Dates: start: 20220818
  5. URSODIOL [Concomitant]
     Active Substance: URSODIOL
     Dates: start: 20221219, end: 20230103
  6. MISOPROSTOL [Concomitant]
     Active Substance: MISOPROSTOL
     Dates: start: 20230103, end: 20230103
  7. OXYTOCIN [Concomitant]
     Active Substance: OXYTOCIN
     Dates: start: 20230103, end: 20230103
  8. POTASSIUM IODIDE [Concomitant]
     Active Substance: POTASSIUM IODIDE
     Dates: start: 20230103, end: 20230110
  9. ENOXAPARIN-NATRIUM [Concomitant]
     Dates: start: 20230103, end: 20230110
  10. TETANUS TOXOID, REDUCED DIPHTHERIA TOXOID AND ACELLULAR PERTUSSIS VACC [Concomitant]
     Active Substance: TETANUS TOXOID, REDUCED DIPHTHERIA TOXOID AND ACELLULAR PERTUSSIS VACCINE ADSORBED, TDAP
     Dates: start: 20221118

REACTIONS (3)
  - Premature rupture of membranes [Recovered/Resolved]
  - Pre-eclampsia [Recovered/Resolved]
  - Maternal exposure before pregnancy [Unknown]

NARRATIVE: CASE EVENT DATE: 20230102
